FAERS Safety Report 10574494 (Version 1)
Quarter: 2014Q4

REPORT INFORMATION
  Report Type: Spontaneous
  Country: IT (occurrence: IT)
  Receive Date: 20141110
  Receipt Date: 20141110
  Transmission Date: 20150529
  Serious: Yes (Life-Threatening)
  Sender: FDA-Public Use
  Company Number: IT-TEVA-520337ISR

PATIENT
  Age: 51 Year
  Sex: Female

DRUGS (1)
  1. CARBOLITHIUM 300 MG [Suspect]
     Active Substance: LITHIUM CARBONATE
     Dosage: 6 GRAM DAILY;
     Route: 048
     Dates: start: 20141024, end: 20141024

REACTIONS (2)
  - Drug abuse [Unknown]
  - Sopor [Unknown]

NARRATIVE: CASE EVENT DATE: 20141024
